FAERS Safety Report 9368791 (Version 5)
Quarter: 2013Q3

REPORT INFORMATION
  Report Type: Report from Study
  Country: SK (occurrence: SK)
  Receive Date: 20130626
  Receipt Date: 20130903
  Transmission Date: 20140515
  Serious: Yes (Hospitalization)
  Sender: FDA-Public Use
  Company Number: SK-ROCHE-1239767

PATIENT
  Age: 64 Year
  Sex: Female
  Weight: 97 kg

DRUGS (2)
  1. RANIBIZUMAB [Suspect]
     Indication: RETINAL VEIN OCCLUSION
     Dosage: LAST DOSE PRIOR TO SAE: 08/JUL/2013
     Route: 050
     Dates: start: 20130311
  2. BISOCARD [Concomitant]
     Route: 065
     Dates: start: 199203

REACTIONS (2)
  - Cardiac failure [Recovered/Resolved]
  - Cardiac failure [Recovered/Resolved]
